FAERS Safety Report 4847200-4 (Version None)
Quarter: 2005Q4

REPORT INFORMATION
  Report Type: 
  Country: None (occurrence: None)
  Receive Date: 20051207
  Receipt Date: 20051202
  Transmission Date: 20060501
  Serious: Yes (Other)
  Sender: FDA-Public Use
  Company Number: US-MERCK-0512USA00378

PATIENT
  Sex: Female

DRUGS (3)
  1. SINGULAIR [Suspect]
     Route: 048
  2. ADVAIR DISKUS 100/50 [Concomitant]
     Route: 065
  3. ALLERGENIC EXTRACT [Concomitant]
     Route: 065

REACTIONS (1)
  - ALLERGIC GRANULOMATOUS ANGIITIS [None]
